FAERS Safety Report 6653188-6 (Version None)
Quarter: 2010Q1

REPORT INFORMATION
  Report Type: 
  Country: None (occurrence: None)
  Receive Date: 20100326
  Receipt Date: 20100315
  Transmission Date: 20100710
  Serious: No
  Sender: FDA-Public Use
  Company Number: KR-JNJFOC-20100304624

PATIENT
  Age: 81 Year
  Sex: Female

DRUGS (3)
  1. DURAGESIC-100 [Suspect]
     Indication: SPINAL COLUMN STENOSIS
     Route: 062
     Dates: start: 20100312, end: 20100313
  2. ASPIRIN [Concomitant]
     Route: 065
  3. UNKNOWN MEDICATION [Concomitant]
     Indication: DYSLIPIDAEMIA
     Route: 065

REACTIONS (4)
  - DRUG PRESCRIBING ERROR [None]
  - INAPPROPRIATE SCHEDULE OF DRUG ADMINISTRATION [None]
  - TREATMENT NONCOMPLIANCE [None]
  - VAGINAL HAEMORRHAGE [None]
